FAERS Safety Report 5342989-2 (Version None)
Quarter: 2007Q2

REPORT INFORMATION
  Report Type: 
  Country: None (occurrence: None)
  Receive Date: 20070416
  Receipt Date: 20070219
  Transmission Date: 20071010
  Serious: No
  Sender: FDA-Public Use
  Company Number: 2007SP000544

PATIENT
  Age: 81 Year
  Sex: Female
  Weight: 81.6475 kg

DRUGS (4)
  1. LUNESTA [Suspect]
     Indication: INSOMNIA
     Dosage: 3 MG; HS; ORAL
     Route: 048
     Dates: start: 20061201, end: 20070218
  2. SIMVASTATIN [Concomitant]
  3. EVISTA [Concomitant]
  4. DESMORPRESIN ACETATE [Concomitant]

REACTIONS (3)
  - ERYTHEMA [None]
  - LIP SWELLING [None]
  - OEDEMA MOUTH [None]
